FAERS Safety Report 7689693-3 (Version None)
Quarter: 2011Q3

REPORT INFORMATION
  Report Type: 
  Country: None (occurrence: None)
  Receive Date: 20110817
  Receipt Date: 20110628
  Transmission Date: 20111222
  Serious: No
  Sender: FDA-Public Use
  Company Number: US-BAYER-2011-056070

PATIENT
  Age: 48 Year
  Sex: Female

DRUGS (1)
  1. MAGNEVIST [Suspect]
     Indication: NUCLEAR MAGNETIC RESONANCE IMAGING
     Dosage: 11 ML, UNK
     Dates: start: 20110509, end: 20110509

REACTIONS (5)
  - ARTHRALGIA [None]
  - FEELING ABNORMAL [None]
  - BACK PAIN [None]
  - MYALGIA [None]
  - ABDOMINAL DISTENSION [None]
